FAERS Safety Report 21979557 (Version 1)
Quarter: 2023Q1

REPORT INFORMATION
  Report Type: Spontaneous
  Country: US (occurrence: None)
  Receive Date: 20230208
  Receipt Date: 20230208
  Transmission Date: 20230418
  Serious: Yes (Death)
  Sender: FDA-Public Use
  Company Number: None

PATIENT
  Sex: Male

DRUGS (3)
  1. LORBRENA [Suspect]
     Active Substance: LORLATINIB
     Indication: Lung neoplasm malignant
     Dosage: 100 MG ORAL??TAKE 1 TABLET (100 MG) BY MOUTH DAILY.
     Route: 048
     Dates: start: 20220614
  2. LORBRENA [Suspect]
     Active Substance: LORLATINIB
     Indication: Lung neoplasm malignant
  3. LORBRENA [Suspect]
     Active Substance: LORLATINIB
     Indication: Bronchial carcinoma

REACTIONS (1)
  - Death [None]
